FAERS Safety Report 7957971-6 (Version None)
Quarter: 2011Q4

REPORT INFORMATION
  Report Type: 
  Country: None (occurrence: None)
  Receive Date: 20111205
  Receipt Date: 20111124
  Transmission Date: 20120403
  Serious: Yes (Hospitalization)
  Sender: FDA-Public Use
  Company Number: US-SANOFI-AVENTIS-2011SA077522

PATIENT
  Age: 82 Year
  Sex: Female

DRUGS (29)
  1. LOVASTATIN [Concomitant]
     Dates: start: 20100324
  2. LOVASTATIN [Concomitant]
     Dates: start: 20100619
  3. LISINOPRIL [Concomitant]
     Dates: start: 20100731
  4. TIOPRONIN [Concomitant]
     Dosage: DOSE:1 PUFF(S)
     Dates: start: 20100318
  5. MECLIZINE [Concomitant]
     Dates: start: 20090115
  6. HYDROCODONE BITARTRATE + ACETAMINOPHEN [Concomitant]
     Dosage: DOSE: 10/500 MG
     Dates: start: 20100723
  7. LISINOPRIL [Concomitant]
     Dates: start: 20060525
  8. PRASUGREL [Concomitant]
     Dates: start: 20100324
  9. CLONAZEPAM [Concomitant]
     Dates: start: 20100309
  10. COD LIVER OIL [Concomitant]
     Dosage: DOSE:1 TABLESPOON(S)
     Dates: start: 20100324
  11. COD LIVER OIL [Concomitant]
     Dates: start: 20100527
  12. NPH INSULIN [Concomitant]
     Dosage: DOSE:66 UNIT(S)
     Dates: start: 20090810
  13. GLYCERYL TRINITRATE [Concomitant]
     Dosage: 5 MCG/KG/MIN
     Dates: start: 20100101
  14. IPRATROPIUM BROMIDE/SALBUTAMOL SULFATE [Concomitant]
     Dosage: DOSE:1 PUFF(S)
     Dates: start: 20060615
  15. VITAMIN B-12 [Concomitant]
     Dates: start: 20100802
  16. PLAVIX [Suspect]
     Route: 048
  17. OXYCODONE HCL [Concomitant]
     Dates: start: 20100406
  18. CITALOPRAM [Concomitant]
     Dates: start: 20090101
  19. ASPIRIN [Concomitant]
     Dates: start: 20060525
  20. FUROSEMIDE [Concomitant]
     Dates: start: 20100527
  21. ASPIRIN [Concomitant]
     Dates: start: 20100805
  22. POTASSIUM CHLORIDE [Concomitant]
     Dates: start: 20100513
  23. GLYCERYL TRINITRATE [Concomitant]
     Dosage: DOSE:1 UNIT(S)
     Dates: start: 20100723
  24. INVESTIGATIONAL DRUG [Suspect]
     Indication: ACUTE CORONARY SYNDROME
     Dosage: DOSE:1 UNIT(S)
     Route: 048
     Dates: start: 20100525
  25. HEPARIN SODIUM [Concomitant]
     Dates: start: 20100101
  26. ALBUTEROL [Concomitant]
     Dosage: DOSE:1 PUFF(S)
     Dates: start: 20100615
  27. PLAVIX [Suspect]
     Route: 048
     Dates: start: 20110201, end: 20110908
  28. FUROSEMIDE [Concomitant]
     Dates: start: 20100731
  29. IPRATROPIUM BROMIDE [Concomitant]
     Dosage: DOSE:1 PUFF(S)
     Dates: start: 20060615

REACTIONS (9)
  - URINARY TRACT INFECTION [None]
  - GASTROINTESTINAL HAEMORRHAGE [None]
  - VOMITING [None]
  - MELAENA [None]
  - MYOCARDIAL ISCHAEMIA [None]
  - CHRONIC OBSTRUCTIVE PULMONARY DISEASE [None]
  - DYSPNOEA [None]
  - ANAEMIA [None]
  - ACUTE MYOCARDIAL INFARCTION [None]
